FAERS Safety Report 7385317-3 (Version None)
Quarter: 2011Q1

REPORT INFORMATION
  Report Type: 
  Country: None (occurrence: None)
  Receive Date: 20110330
  Receipt Date: 20100716
  Transmission Date: 20110831
  Serious: No
  Sender: FDA-Public Use
  Company Number: US-MYLANLABS-2010S1012806

PATIENT
  Age: 39 Year
  Sex: Female

DRUGS (5)
  1. PROPRANOLOL [Concomitant]
     Route: 048
  2. ADDERALL 10 [Concomitant]
     Route: 048
  3. KLONOPIN [Concomitant]
     Route: 048
  4. EMSAM [Suspect]
     Indication: DEPRESSION
     Route: 062
     Dates: start: 20100401
  5. TRAZODONE HCL [Concomitant]
     Route: 048

REACTIONS (2)
  - APPLICATION SITE HAEMATOMA [None]
  - APPLICATION SITE ERYTHEMA [None]
